APPROVED DRUG PRODUCT: VANCOMYCIN HYDROCHLORIDE
Active Ingredient: VANCOMYCIN HYDROCHLORIDE
Strength: EQ 25MG BASE/ML
Dosage Form/Route: FOR SOLUTION;ORAL
Application: A214913 | Product #001 | TE Code: AB
Applicant: ALKEM LABORATORIES LTD
Approved: Nov 14, 2022 | RLD: No | RS: No | Type: RX